FAERS Safety Report 10526506 (Version 2)
Quarter: 2014Q4

REPORT INFORMATION
  Report Type: Spontaneous
  Country: US (occurrence: US)
  Receive Date: 20141020
  Receipt Date: 20141106
  Transmission Date: 20150528
  Serious: Yes (Death, Other)
  Sender: FDA-Public Use
  Company Number: US-UNITED THERAPEUTICS-UNT-2014-009221

PATIENT
  Age: 58 Year
  Sex: Female
  Weight: 93.88 kg

DRUGS (2)
  1. WARFARIN [Concomitant]
     Active Substance: WARFARIN
     Indication: PRODUCT USED FOR UNKNOWN INDICATION
  2. REMODULIN [Suspect]
     Active Substance: TREPROSTINIL
     Indication: COR PULMONALE CHRONIC
     Dosage: 0.0864 ?G/KG , CONTINUING
     Route: 058
     Dates: start: 20090427

REACTIONS (4)
  - Device occlusion [Unknown]
  - Cardiac arrest [Fatal]
  - Drug dose omission [Unknown]
  - Syncope [Unknown]

NARRATIVE: CASE EVENT DATE: 20140902
